FAERS Safety Report 7869797-2 (Version None)
Quarter: 2011Q4

REPORT INFORMATION
  Report Type: 
  Country: None (occurrence: None)
  Receive Date: 20111028
  Receipt Date: 20110110
  Transmission Date: 20120403
  Serious: No
  Sender: FDA-Public Use
  Company Number: US-AMGEN-USASP2011000553

PATIENT
  Age: 48 Year
  Sex: Female

DRUGS (6)
  1. ENBREL [Suspect]
     Indication: RHEUMATOID ARTHRITIS
     Dosage: 50 MG, QWK
     Route: 058
     Dates: start: 20101122
  2. SYNTHROID [Concomitant]
     Dosage: 25 A?G, UNK
  3. SINGULAIR [Concomitant]
     Dosage: 5 MG, UNK
  4. FLUOXETINE HCL [Concomitant]
     Dosage: 10 MG, UNK
  5. PLAQUENIL [Concomitant]
     Dosage: 200 MG, UNK
  6. CALCIUM [Concomitant]

REACTIONS (5)
  - INJECTION SITE ERYTHEMA [None]
  - INJECTION SITE RASH [None]
  - INJECTION SITE WARMTH [None]
  - INJECTION SITE NODULE [None]
  - INJECTION SITE PAIN [None]
